FAERS Safety Report 8313844-0 (Version None)
Quarter: 2012Q2

REPORT INFORMATION
  Report Type: 
  Country: None (occurrence: None)
  Receive Date: 20120426
  Receipt Date: 20120418
  Transmission Date: 20120825
  Serious: Yes (Other)
  Sender: FDA-Public Use
  Company Number: US-BAYER-2011-123888

PATIENT
  Age: 35 Year
  Sex: Female
  Weight: 88.889 kg

DRUGS (17)
  1. PROAIR HFA [Concomitant]
  2. PEPCID [Concomitant]
     Indication: DYSPEPSIA
  3. NASONEX [Concomitant]
  4. ALLEGRA [Concomitant]
     Indication: MULTIPLE ALLERGIES
  5. YAZ [Suspect]
     Dosage: UNK
     Dates: start: 20030101, end: 20100101
  6. EPIPEN [Concomitant]
  7. ACIPHEX [Concomitant]
  8. AMOXICILLIN [Concomitant]
  9. NSAID'S [Concomitant]
  10. PROTONIX [Concomitant]
  11. DIAZEPAM [Concomitant]
     Indication: BACK PAIN
  12. MECLIZINE [Concomitant]
  13. YASMIN [Suspect]
     Dosage: UNK
     Dates: start: 20030101, end: 20100101
  14. DROSPIRENONE AND ETHINYL ESTRADIOL [Suspect]
     Dosage: UNK
     Dates: start: 20030101, end: 20100101
  15. ACETAMINOPHEN W/ CODEINE [Concomitant]
  16. ONDANSETRON [Concomitant]
  17. MIGRAINE MEDS [Concomitant]

REACTIONS (8)
  - GENERAL PHYSICAL HEALTH DETERIORATION [None]
  - PAIN [None]
  - GALLBLADDER DISORDER [None]
  - CHOLECYSTITIS CHRONIC [None]
  - DEPRESSION [None]
  - EMOTIONAL DISTRESS [None]
  - ANXIETY [None]
  - CHOLELITHIASIS [None]
